FAERS Safety Report 23881379 (Version 1)
Quarter: 2024Q2

REPORT INFORMATION
  Report Type: Spontaneous
  Country: US (occurrence: US)
  Receive Date: 20240521
  Receipt Date: 20240521
  Transmission Date: 20240716
  Serious: No
  Sender: FDA-Public Use
  Company Number: US-Calliditas-2024CAL00733

PATIENT
  Age: 34 Year
  Sex: Female

DRUGS (2)
  1. TARPEYO [Suspect]
     Active Substance: BUDESONIDE
     Indication: IgA nephropathy
     Route: 048
     Dates: start: 20230916
  2. RAMIPRIL [Concomitant]
     Active Substance: RAMIPRIL
     Dosage: FROM 5 MG TO 7.5 MG

REACTIONS (1)
  - Skin discomfort [Unknown]
